FAERS Safety Report 25498203 (Version 5)
Quarter: 2025Q4

REPORT INFORMATION
  Report Type: Report from Study
  Country: US (occurrence: US)
  Receive Date: 20250701
  Receipt Date: 20251124
  Transmission Date: 20260118
  Serious: Yes (Other)
  Sender: TAKEDA
  Company Number: US-TAKEDA-US201515153

PATIENT
  Age: 23 Year
  Sex: Male
  Weight: 62 kg

DRUGS (26)
  1. VELAGLUCERASE ALFA [Suspect]
     Active Substance: VELAGLUCERASE ALFA
     Indication: Gaucher^s disease
     Dosage: 3600 INTERNATIONAL UNIT, Q2WEEKS
  2. VELAGLUCERASE ALFA [Suspect]
     Active Substance: VELAGLUCERASE ALFA
     Dosage: 4000 INTERNATIONAL UNIT, Q2WEEKS
  3. XANAX [Concomitant]
     Active Substance: ALPRAZOLAM
     Dosage: UNK
  4. BUSPIRONE HCL [Concomitant]
     Active Substance: BUSPIRONE HYDROCHLORIDE
     Dosage: UNK
  5. SODIUM CHLORIDE [Concomitant]
     Active Substance: SODIUM CHLORIDE
     Indication: Catheter management
     Dosage: UNK
  6. EPINEPHRINE [Concomitant]
     Active Substance: EPINEPHRINE
     Dosage: UNK
  7. ZYRTEC [Concomitant]
     Active Substance: CETIRIZINE HYDROCHLORIDE
     Dosage: UNK
  8. CALCIUM\CHOLECALCIFEROL [Concomitant]
     Active Substance: CALCIUM\CHOLECALCIFEROL
     Dosage: UNK
  9. MOTRIN [Concomitant]
     Active Substance: IBUPROFEN
     Dosage: UNK
  10. STERILE WATER [Concomitant]
     Active Substance: WATER
     Dosage: 50 MILLILITER
  11. TYLENOL [Concomitant]
     Active Substance: ACETAMINOPHEN
     Dosage: UNK
  12. ZOFRAN [Concomitant]
     Active Substance: ONDANSETRON HYDROCHLORIDE
     Dosage: UNK
  13. LEXAPRO [Concomitant]
     Active Substance: ESCITALOPRAM OXALATE
     Dosage: UNK
  14. SODIUM CHLORIDE [Concomitant]
     Active Substance: SODIUM CHLORIDE
     Dosage: UNK
  15. MELATONIN [Concomitant]
     Active Substance: MELATONIN
     Dosage: UNK
  16. BANOPHEN [Concomitant]
     Active Substance: DIPHENHYDRAMINE HYDROCHLORIDE
     Dosage: UNK
  17. DIPHENHYDRAMINE [Concomitant]
     Active Substance: DIPHENHYDRAMINE
     Indication: Premedication
     Dosage: 50 MILLIGRAM
  18. EPIPEN [Concomitant]
     Active Substance: EPINEPHRINE
     Indication: Anaphylactic reaction
     Dosage: 0.3 MILLIGRAM
  19. DIPHENHYDRAMINE HYDROCHLORIDE [Concomitant]
     Active Substance: DIPHENHYDRAMINE HYDROCHLORIDE
     Indication: Premedication
     Dosage: 50 MILLIGRAM
  20. BUSPIRONE [Concomitant]
     Active Substance: BUSPIRONE HYDROCHLORIDE
     Dosage: UNK
  21. VITAMIN D3 [Concomitant]
     Active Substance: CHOLECALCIFEROL
     Dosage: UNK
  22. ONDANSETRON HYDROCHLORIDE [Concomitant]
     Active Substance: ONDANSETRON HYDROCHLORIDE
     Dosage: UNK
  23. FLUAD NOS [Concomitant]
     Active Substance: INFLUENZA VIRUS VACCINE
     Dosage: UNK
  24. MOTRIN IB [Concomitant]
     Active Substance: IBUPROFEN
     Dosage: UNK
  25. CALCIUM [Concomitant]
     Active Substance: CALCIUM
     Dosage: UNK
  26. CYANOCOBALAMIN [Concomitant]
     Active Substance: CYANOCOBALAMIN
     Dosage: UNK

REACTIONS (10)
  - Pneumonia [Not Recovered/Not Resolved]
  - Aphonia [Unknown]
  - COVID-19 [Unknown]
  - Insurance issue [Unknown]
  - Product dose omission issue [Unknown]
  - Product use issue [Unknown]
  - Bronchitis [Unknown]
  - Insomnia [Unknown]
  - Fatigue [Unknown]
  - Upper respiratory tract infection [Unknown]

NARRATIVE: CASE EVENT DATE: 20250622
